FAERS Safety Report 25725864 (Version 1)
Quarter: 2025Q3

REPORT INFORMATION
  Report Type: Spontaneous
  Country: IN (occurrence: IN)
  Receive Date: 20250826
  Receipt Date: 20250826
  Transmission Date: 20251020
  Serious: Yes (Death, Hospitalization, Other)
  Sender: RANBAXY
  Company Number: IN-SUN PHARMACEUTICAL INDUSTRIES LTD-2025R1-524213

PATIENT
  Age: 62 Year
  Sex: Male

DRUGS (4)
  1. CEFOPERAZONE\SULBACTAM [Suspect]
     Active Substance: CEFOPERAZONE\SULBACTAM
     Indication: Tuberculosis sepsis
     Route: 065
  2. FLUCONAZOLE [Suspect]
     Active Substance: FLUCONAZOLE
     Indication: Tuberculosis sepsis
     Route: 065
  3. TERLIPRESSIN [Suspect]
     Active Substance: TERLIPRESSIN
     Indication: Haemorrhage
     Route: 065
  4. PANTOPRAZOLE [Suspect]
     Active Substance: PANTOPRAZOLE
     Indication: Gastric pH decreased
     Route: 065

REACTIONS (1)
  - Condition aggravated [Fatal]
